FAERS Safety Report 25663155 (Version 1)
Quarter: 2025Q3

REPORT INFORMATION
  Report Type: Spontaneous
  Country: CN (occurrence: CN)
  Receive Date: 20250811
  Receipt Date: 20250811
  Transmission Date: 20251020
  Serious: Yes (Other)
  Sender: EMD SERONO INC
  Company Number: CN-Merck Healthcare KGaA-2025039616

PATIENT
  Sex: Female

DRUGS (2)
  1. EUTHYROX [Suspect]
     Active Substance: LEVOTHYROXINE SODIUM
     Indication: Thyroid hormones increased
  2. FOLIC ACID [Concomitant]
     Active Substance: FOLIC ACID
     Indication: Product used for unknown indication

REACTIONS (7)
  - Anal fissure [Unknown]
  - Emotional disorder [Unknown]
  - Feeding disorder [Unknown]
  - Chest discomfort [Unknown]
  - Progesterone decreased [Unknown]
  - Malaise [Unknown]
  - Maternal exposure during pregnancy [Not Recovered/Not Resolved]
